FAERS Safety Report 4289995-7 (Version None)
Quarter: 2004Q1

REPORT INFORMATION
  Report Type: 
  Country: None (occurrence: None)
  Receive Date: 20040209
  Receipt Date: 20030709
  Transmission Date: 20041129
  Serious: Yes (Hospitalization, Other)
  Sender: FDA-Public Use
  Company Number: USA030740700

PATIENT
  Age: 74 Year
  Sex: Female
  Weight: 85 kg

DRUGS (1)
  1. EVISTA [Suspect]
     Dosage: 60MG/DAY
     Dates: start: 19990101

REACTIONS (1)
  - PULMONARY EMBOLISM [None]
